FAERS Safety Report 4840535-0 (Version None)
Quarter: 2005Q4

REPORT INFORMATION
  Report Type: 
  Country: None (occurrence: None)
  Receive Date: 20051130
  Receipt Date: 20050926
  Transmission Date: 20060501
  Serious: Yes (Other)
  Sender: FDA-Public Use
  Company Number: US-BRISTOL-MYERS SQUIBB COMPANY-13121959

PATIENT
  Age: 60 Year
  Sex: Male
  Weight: 101 kg

DRUGS (2)
  1. ERBITUX [Suspect]
     Indication: COLON CANCER
     Route: 042
     Dates: start: 20050926, end: 20050926
  2. BENADRYL [Concomitant]
     Indication: PREMEDICATION
     Route: 042
     Dates: start: 20050926, end: 20050926

REACTIONS (3)
  - BRONCHOSPASM [None]
  - HYPOTENSION [None]
  - VOMITING [None]
